FAERS Safety Report 12824217 (Version 1)
Quarter: 2016Q4

REPORT INFORMATION
  Report Type: Spontaneous
  Country: NL (occurrence: NL)
  Receive Date: 20161006
  Receipt Date: 20161006
  Transmission Date: 20170207
  Serious: Yes (Life-Threatening, Other)
  Sender: FDA-Public Use
  Company Number: NL-ALLERGAN-1670900US

PATIENT
  Sex: Male

DRUGS (1)
  1. CIPRAMIL TABLETS [Suspect]
     Active Substance: CITALOPRAM HYDROBROMIDE
     Indication: DEPRESSION
     Route: 065

REACTIONS (16)
  - Suicidal ideation [Unknown]
  - Insomnia [Unknown]
  - Somnolence [Unknown]
  - Feelings of worthlessness [Unknown]
  - Memory impairment [Unknown]
  - Self-injurious ideation [Unknown]
  - Cognitive disorder [Unknown]
  - Abulia [Unknown]
  - Disturbance in attention [Unknown]
  - Asthenia [Unknown]
  - Depressed mood [Unknown]
  - Fatigue [Unknown]
  - Negative thoughts [Unknown]
  - Helplessness [Unknown]
  - Decreased interest [Unknown]
  - Irritability [Unknown]
